FAERS Safety Report 9495277 (Version 1)
Quarter: 2013Q3

REPORT INFORMATION
  Report Type: Spontaneous
  Country: GB (occurrence: None)
  Receive Date: 20130828
  Receipt Date: 20130828
  Transmission Date: 20140515
  Serious: Yes (Hospitalization)
  Sender: FDA-Public Use
  Company Number: GER/UKI/13/0034282

PATIENT
  Age: 75 Year
  Sex: Female

DRUGS (1)
  1. OMEPRAZOLE (OMEPRAZOLE) [Suspect]
     Indication: COLITIS
     Dosage: 20MG, 1 IN 1D, ORAL
     Route: 048
     Dates: start: 20130720, end: 20130730

REACTIONS (6)
  - Skin exfoliation [None]
  - Rash pruritic [None]
  - Rash pustular [None]
  - Skin tightness [None]
  - Dysphagia [None]
  - Rash macular [None]
